FAERS Safety Report 8044908-7 (Version None)
Quarter: 2012Q1

REPORT INFORMATION
  Report Type: 
  Country: None (occurrence: None)
  Receive Date: 20120113
  Receipt Date: 20120110
  Transmission Date: 20120608
  Serious: Yes (Hospitalization)
  Sender: FDA-Public Use
  Company Number: DE-ROCHE-1029664

PATIENT
  Sex: Female

DRUGS (7)
  1. MABTHERA [Suspect]
     Dates: start: 20090112
  2. MABTHERA [Suspect]
     Dates: start: 20080204
  3. MABTHERA [Suspect]
     Dates: start: 20090401
  4. PREDNISOLONE [Concomitant]
  5. MABTHERA [Suspect]
     Dates: start: 20110501
  6. MABTHERA [Suspect]
     Dates: start: 20100720
  7. MABTHERA [Suspect]
     Indication: RHEUMATOID ARTHRITIS
     Dates: start: 20070716

REACTIONS (1)
  - BREAST CANCER [None]
